FAERS Safety Report 23890611 (Version 1)
Quarter: 2024Q2

REPORT INFORMATION
  Report Type: Spontaneous
  Country: AU (occurrence: AU)
  Receive Date: 20240523
  Receipt Date: 20240523
  Transmission Date: 20240716
  Serious: Yes (Other)
  Sender: FDA-Public Use
  Company Number: AU-TGA-0000782802

PATIENT
  Sex: Female

DRUGS (1)
  1. ADALIMUMAB [Suspect]
     Active Substance: ADALIMUMAB\ISOPROPYL ALCOHOL
     Indication: Uveitis
     Dosage: 40 MG, Q2W, PRE-FILLED PEN
     Route: 058

REACTIONS (5)
  - Osteonecrosis [Unknown]
  - Drug level decreased [Unknown]
  - Iridocyclitis [Unknown]
  - Body mass index increased [Unknown]
  - Weight increased [Unknown]
